FAERS Safety Report 5347157-6 (Version None)
Quarter: 2007Q2

REPORT INFORMATION
  Report Type: 
  Country: None (occurrence: None)
  Receive Date: 20070604
  Receipt Date: 20070604
  Transmission Date: 20071010
  Serious: No
  Sender: FDA-Public Use
  Company Number: None

PATIENT
  Sex: Female
  Weight: 59 kg

DRUGS (11)
  1. CISPLATIN [Suspect]
     Dosage: 328 MG
     Dates: end: 20070529
  2. ERBITUX [Suspect]
     Dosage: 2282 MG
     Dates: end: 20070529
  3. KYTRIL [Concomitant]
  4. ALOXI [Concomitant]
  5. BENADRYL [Concomitant]
  6. DECADRON [Concomitant]
  7. DURAGESIC-100 [Concomitant]
  8. HYDROCORTISONE [Concomitant]
  9. LORAZEPAM [Concomitant]
  10. PERCOCET [Concomitant]
  11. REGLAN [Concomitant]

REACTIONS (4)
  - DEHYDRATION [None]
  - DYSPHAGIA [None]
  - NAUSEA [None]
  - PAIN [None]
